FAERS Safety Report 5693188-6 (Version None)
Quarter: 2008Q2

REPORT INFORMATION
  Report Type: 
  Country: None (occurrence: None)
  Receive Date: 20080403
  Receipt Date: 20080401
  Transmission Date: 20081010
  Serious: Yes (Hospitalization)
  Sender: FDA-Public Use
  Company Number: US-BRISTOL-MYERS SQUIBB COMPANY-14133391

PATIENT
  Age: 65 Year
  Sex: Female

DRUGS (10)
  1. CYTOXAN [Suspect]
     Indication: B-CELL LYMPHOMA
     Dates: start: 20080301, end: 20080301
  2. DOXORUBICIN HCL [Suspect]
     Indication: B-CELL LYMPHOMA
     Dates: start: 20080301, end: 20080301
  3. VINCRISTINE SULFATE [Suspect]
     Indication: B-CELL LYMPHOMA
     Dates: start: 20080301, end: 20080301
  4. KLOR-CON [Suspect]
     Indication: BLOOD POTASSIUM DECREASED
     Dosage: 1DF-20MEQ TAKEN FROM 08FEB TO 06MAR AND 40MEQ FROM 07MAR TO 12MAR08 AND ADVICED TO RESTART AS 20MEQ.
     Route: 048
     Dates: start: 20080208, end: 20080312
  5. PREDNISONE TAB [Suspect]
     Indication: B-CELL LYMPHOMA
     Dates: start: 20080301, end: 20080301
  6. DAPSONE [Concomitant]
  7. DIOVAN [Concomitant]
  8. FLUOXETINE [Concomitant]
  9. HYDROCHLOROTHIAZIDE [Concomitant]
  10. LIPITOR [Concomitant]

REACTIONS (3)
  - DIARRHOEA [None]
  - GASTRIC ULCER HAEMORRHAGE [None]
  - MEDICATION RESIDUE [None]
